FAERS Safety Report 24267296 (Version 2)
Quarter: 2024Q3

REPORT INFORMATION
  Report Type: Spontaneous
  Country: PL (occurrence: PL)
  Receive Date: 20240830
  Receipt Date: 20240909
  Transmission Date: 20241016
  Serious: Yes (Hospitalization, Other)
  Sender: RANBAXY
  Company Number: PL-SUN PHARMACEUTICAL INDUSTRIES LTD-2024R1-465007

PATIENT
  Age: 32 Year
  Sex: Female

DRUGS (1)
  1. HYDROXYCHLOROQUINE [Suspect]
     Active Substance: HYDROXYCHLOROQUINE
     Indication: Sjogren^s syndrome
     Dosage: 200 MILLIGRAM
     Route: 065

REACTIONS (5)
  - Induced labour [Unknown]
  - Exposure during pregnancy [Unknown]
  - Live birth [Unknown]
  - Vaginal haemorrhage [Unknown]
  - Premature separation of placenta [Unknown]
